FAERS Safety Report 24587564 (Version 1)
Quarter: 2024Q4

REPORT INFORMATION
  Report Type: Spontaneous
  Country: US (occurrence: US)
  Receive Date: 20241107
  Receipt Date: 20241107
  Transmission Date: 20250115
  Serious: No
  Sender: ELI LILLY AND COMPANY
  Company Number: US-ELI_LILLY_AND_COMPANY-US202410021322

PATIENT

DRUGS (2)
  1. ERBITUX [Suspect]
     Active Substance: CETUXIMAB
     Indication: Product used for unknown indication
     Dosage: 200 MG, UNKNOWN
     Route: 065
     Dates: start: 2023
  2. ERBITUX [Suspect]
     Active Substance: CETUXIMAB
     Dosage: 100 MG, UNKNOWN
     Route: 065

REACTIONS (1)
  - Hepatic enzyme increased [Unknown]
